FAERS Safety Report 6490222-0 (Version None)
Quarter: 2009Q4

REPORT INFORMATION
  Report Type: 
  Country: None (occurrence: None)
  Receive Date: 20091211
  Receipt Date: 20091206
  Transmission Date: 20100525
  Serious: Yes (Other)
  Sender: FDA-Public Use
  Company Number: EG-ROCHE-672870

PATIENT
  Age: 46 Year

DRUGS (2)
  1. PEG-INTERFERON ALFA 2A (RO 25-8310) [Suspect]
     Indication: HEPATITIS C
     Route: 058
     Dates: start: 20081106, end: 20090822
  2. RIBAVIRIN [Suspect]
     Indication: HEPATITIS C
     Route: 048
     Dates: start: 20081106, end: 20090822

REACTIONS (4)
  - DEPRESSION [None]
  - GASTRITIS [None]
  - LEUKOPENIA [None]
  - NEUTROPENIA [None]
